FAERS Safety Report 8248293-7 (Version None)
Quarter: 2012Q1

REPORT INFORMATION
  Report Type: 
  Country: None (occurrence: None)
  Receive Date: 20120330
  Receipt Date: 20120328
  Transmission Date: 20120608
  Serious: Yes (Other)
  Sender: FDA-Public Use
  Company Number: IN-ABBOTT-12P-078-0919658-00

PATIENT
  Age: 8 Year
  Sex: Male

DRUGS (2)
  1. CYCLOSPORINE [Suspect]
     Indication: GRAFT VERSUS HOST DISEASE
  2. PREDNISOLONE [Suspect]
     Indication: GRAFT VERSUS HOST DISEASE

REACTIONS (2)
  - KAPOSI'S SARCOMA [None]
  - HERPES VIRUS INFECTION [None]
